FAERS Safety Report 5335541-6 (Version None)
Quarter: 2007Q2

REPORT INFORMATION
  Report Type: 
  Country: None (occurrence: None)
  Receive Date: 20070514
  Receipt Date: 20070502
  Transmission Date: 20071010
  Serious: Yes (Hospitalization)
  Sender: FDA-Public Use
  Company Number: 200711180

PATIENT
  Age: 54 Year
  Sex: Male
  Weight: 99.7 kg

DRUGS (12)
  1. ALBUREX (ZLB BEHRING) [Suspect]
     Dosage: 250 ML DAILY IV
     Route: 042
     Dates: start: 20070108, end: 20070108
  2. ALBUREX (ZLB BEHRING) [Suspect]
     Dosage: 250 ML DAILY IV
     Route: 042
     Dates: start: 20070108, end: 20070108
  3. ALBUREX (ZLB BEHRING) [Suspect]
  4. ALBUMIN (HUMAN) [Suspect]
  5. LUMIGAN [Concomitant]
  6. CEFEPIME [Concomitant]
  7. PREVACID [Concomitant]
  8. LOVASTATIN [Concomitant]
  9. MESTINON [Concomitant]
  10. VANCOMYCIN HCL [Concomitant]
  11. LOVENOX [Concomitant]
  12. ASPIRIN [Concomitant]

REACTIONS (11)
  - ACTINOMYCOSIS [None]
  - BACTERAEMIA [None]
  - BLOOD CULTURE POSITIVE [None]
  - CLOSTRIDIUM DIFFICILE COLITIS [None]
  - CONDITION AGGRAVATED [None]
  - HAEMOLYSIS [None]
  - HYPOTENSION [None]
  - MYASTHENIA GRAVIS [None]
  - POST PROCEDURAL COMPLICATION [None]
  - SEPSIS [None]
  - STENOTROPHOMONAS INFECTION [None]
